FAERS Safety Report 9229860 (Version 1)
Quarter: 2013Q2

REPORT INFORMATION
  Report Type: Spontaneous
  Country: US (occurrence: None)
  Receive Date: 20130412
  Receipt Date: 20130412
  Transmission Date: 20140414
  Serious: Yes (Other)
  Sender: FDA-Public Use
  Company Number: None

PATIENT
  Age: 23 Year
  Sex: Female
  Weight: 98.43 kg

DRUGS (1)
  1. LEVONORGESTRAL AND ETHINYL ESTRADIOL .15-.03MG LUPIN [Suspect]
     Indication: CONTRACEPTION
     Dosage: 90 ONCE A DAY PO
     Route: 048
     Dates: start: 20130408, end: 20130708

REACTIONS (3)
  - Product packaging issue [None]
  - Unwanted pregnancy [None]
  - Incorrect dose administered [None]
